FAERS Safety Report 17906579 (Version 1)
Quarter: 2020Q2

REPORT INFORMATION
  Report Type: Spontaneous
  Country: US (occurrence: US)
  Receive Date: 20200616
  Receipt Date: 20200616
  Transmission Date: 20200714
  Serious: No
  Sender: FDA-Public Use
  Company Number: US-ROCHE-2553203

PATIENT
  Sex: Female

DRUGS (19)
  1. LISINOPRIL. [Concomitant]
     Active Substance: LISINOPRIL
  2. HUMIRA [Concomitant]
     Active Substance: ADALIMUMAB
     Dosage: 0.8
     Route: 065
  3. RISPERIDONE. [Concomitant]
     Active Substance: RISPERIDONE
     Route: 065
  4. ACTEMRA [Suspect]
     Active Substance: TOCILIZUMAB
     Indication: RHEUMATOID ARTHRITIS
     Dosage: ONGOING : YES
     Route: 058
     Dates: start: 201512
  5. LORAZEPAM. [Concomitant]
     Active Substance: LORAZEPAM
     Route: 065
  6. BUSPIRONE [Concomitant]
     Active Substance: BUSPIRONE HYDROCHLORIDE
     Route: 065
  7. ZITHROMAX [Concomitant]
     Active Substance: AZITHROMYCIN DIHYDRATE
  8. MELOXICAM. [Concomitant]
     Active Substance: MELOXICAM
     Route: 065
  9. MONTELUKAST [Concomitant]
     Active Substance: MONTELUKAST SODIUM
     Route: 065
  10. METOTREXATE [Concomitant]
     Active Substance: METHOTREXATE SODIUM
     Route: 065
  11. METOPROLOL. [Concomitant]
     Active Substance: METOPROLOL
     Route: 065
  12. OMEPRAZOLE. [Concomitant]
     Active Substance: OMEPRAZOLE
     Route: 065
  13. ATORVASTATIN [Concomitant]
     Active Substance: ATORVASTATIN
     Route: 065
  14. TRAMADOL HCL [Concomitant]
     Active Substance: TRAMADOL HYDROCHLORIDE
     Route: 065
  15. TRIMETHOBENZAMIDE [Concomitant]
     Active Substance: TRIMETHOBENZAMIDE
     Route: 065
  16. METOPROLOL. [Concomitant]
     Active Substance: METOPROLOL
     Route: 065
  17. AMITIZA [Concomitant]
     Active Substance: LUBIPROSTONE
     Route: 065
  18. PREDNISONE. [Concomitant]
     Active Substance: PREDNISONE
     Route: 065
  19. MIRTAZAPINE. [Concomitant]
     Active Substance: MIRTAZAPINE
     Route: 065

REACTIONS (1)
  - Nasopharyngitis [Unknown]
